FAERS Safety Report 10018264 (Version 1)
Quarter: 2014Q1

REPORT INFORMATION
  Report Type: Spontaneous
  Country: JP (occurrence: JP)
  Receive Date: 20140318
  Receipt Date: 20140318
  Transmission Date: 20141002
  Serious: Yes (Other)
  Sender: FDA-Public Use
  Company Number: JP-SA-2014SA032952

PATIENT
  Age: 50 Year
  Sex: Male

DRUGS (7)
  1. MYSLEE [Suspect]
     Indication: PRODUCT USED FOR UNKNOWN INDICATION
     Route: 048
  2. ABILIFY [Concomitant]
     Dosage: FORM: ORODISPERSIBLE CR TABLET
  3. CYMBALTA [Concomitant]
  4. EPERISONE HYDROCHLORIDE [Concomitant]
  5. DEPAS [Concomitant]
  6. TRIAZOLAM [Concomitant]
  7. FAMOTIDINE [Concomitant]
     Dosage: FORM: ORODISPERSIBLE CR TABLET

REACTIONS (1)
  - Road traffic accident [Unknown]
